FAERS Safety Report 7425850-9 (Version None)
Quarter: 2011Q2

REPORT INFORMATION
  Report Type: 
  Country: None (occurrence: None)
  Receive Date: 20110420
  Receipt Date: 20110411
  Transmission Date: 20111010
  Serious: Yes (Other)
  Sender: FDA-Public Use
  Company Number: CA-BAXTER-2011BH002868

PATIENT
  Age: 4 Year

DRUGS (1)
  1. GAMMAGARD LIQUID [Suspect]
     Indication: KAWASAKI'S DISEASE
     Route: 042
     Dates: start: 20110130, end: 20110131

REACTIONS (3)
  - NAUSEA [None]
  - VIRAL INFECTION [None]
  - VOMITING [None]
